FAERS Safety Report 8326258-4 (Version None)
Quarter: 2012Q2

REPORT INFORMATION
  Report Type: 
  Country: None (occurrence: None)
  Receive Date: 20120501
  Receipt Date: 20111020
  Transmission Date: 20120825
  Serious: No
  Sender: FDA-Public Use
  Company Number: 2009BI017129

PATIENT
  Age: 28 Year
  Sex: Female

DRUGS (1)
  1. TYSABRI [Suspect]
     Indication: MULTIPLE SCLEROSIS
     Route: 042
     Dates: start: 20090313, end: 20110817

REACTIONS (4)
  - FATIGUE [None]
  - HYPERSENSITIVITY [None]
  - URTICARIA [None]
  - NASOPHARYNGITIS [None]
